FAERS Safety Report 5589282-0 (Version None)
Quarter: 2008Q1

REPORT INFORMATION
  Report Type: 
  Country: None (occurrence: None)
  Receive Date: 20080109
  Receipt Date: 20080109
  Transmission Date: 20080703
  Serious: No
  Sender: FDA-Public Use
  Company Number: None

PATIENT

DRUGS (2)
  1. PREMARIN [Suspect]
  2. PREMPRO [Suspect]

REACTIONS (6)
  - BREAST CANCER FEMALE [None]
  - DEFORMITY [None]
  - PAIN [None]
  - SCAR [None]
  - SKIN GRAFT INFECTION [None]
  - STREPTOCOCCAL INFECTION [None]
